FAERS Safety Report 6674570-7 (Version None)
Quarter: 2010Q2

REPORT INFORMATION
  Report Type: 
  Country: None (occurrence: None)
  Receive Date: 20100409
  Receipt Date: 20100329
  Transmission Date: 20101027
  Serious: Yes (Other)
  Sender: FDA-Public Use
  Company Number: JP-PFIZER INC-2010034029

PATIENT
  Age: 86 Year
  Sex: Male

DRUGS (12)
  1. DALACIN [Suspect]
     Indication: PNEUMONIA ASPIRATION
     Dosage: 600 MG, 2X/DAY
     Route: 042
     Dates: start: 20100204, end: 20100219
  2. AZACTAM [Suspect]
     Indication: PNEUMONIA ASPIRATION
     Dosage: 1 G, 2X/DAY
     Route: 042
     Dates: start: 20100204, end: 20100216
  3. SODIUM CHLORIDE [Concomitant]
     Dosage: UNK
     Route: 048
  4. CLEANAL [Concomitant]
     Dosage: UNK
     Route: 048
  5. URIEF [Concomitant]
     Dosage: UNK
     Route: 048
  6. ALDACTONE [Concomitant]
     Dosage: UNK
     Route: 048
  7. MYSTAN [Concomitant]
     Dosage: UNK
     Route: 048
  8. GABAPENTIN [Concomitant]
     Dosage: UNK
     Route: 048
  9. ZONISAMIDE [Concomitant]
     Dosage: UNK
     Route: 048
  10. LAFUTIDINE [Concomitant]
     Dosage: UNK
     Route: 048
     Dates: start: 20100128
  11. POTACOL-R [Concomitant]
     Route: 042
     Dates: start: 20100209, end: 20100219
  12. THIAMINE HYDROCHLORIDE [Concomitant]
     Route: 042
     Dates: start: 20100209, end: 20100219

REACTIONS (1)
  - HYPOTHERMIA [None]
